FAERS Safety Report 23484747 (Version 3)
Quarter: 2025Q2

REPORT INFORMATION
  Report Type: Spontaneous
  Country: GB (occurrence: GB)
  Receive Date: 20240206
  Receipt Date: 20250513
  Transmission Date: 20250717
  Serious: Yes (Death, Hospitalization)
  Sender: RECORDATI
  Company Number: GB-VA000000605-2023008707

PATIENT
  Sex: Male

DRUGS (7)
  1. PASIREOTIDE [Suspect]
     Active Substance: PASIREOTIDE
     Route: 030
     Dates: start: 20231127, end: 2023
  2. PASIREOTIDE [Suspect]
     Active Substance: PASIREOTIDE
     Route: 030
     Dates: start: 20231223
  3. EVEROLIMUS [Suspect]
     Active Substance: EVEROLIMUS
     Indication: Product used for unknown indication
  4. LUTATHERA [Concomitant]
     Active Substance: LUTETIUM OXODOTREOTIDE LU-177
     Indication: Hypoglycaemia
     Dates: start: 2018
  5. LUTATHERA [Concomitant]
     Active Substance: LUTETIUM OXODOTREOTIDE LU-177
     Indication: Insulinoma
  6. LUTATHERA [Concomitant]
     Active Substance: LUTETIUM OXODOTREOTIDE LU-177
  7. LUTATHERA [Concomitant]
     Active Substance: LUTETIUM OXODOTREOTIDE LU-177

REACTIONS (2)
  - Pneumonitis [Fatal]
  - Off label use [Recovered/Resolved]

NARRATIVE: CASE EVENT DATE: 20231127
